FAERS Safety Report 9376620 (Version 1)
Quarter: 2013Q3

REPORT INFORMATION
  Report Type: Report from Study
  Country: US (occurrence: US)
  Receive Date: 20130701
  Receipt Date: 20130701
  Transmission Date: 20140515
  Serious: Yes (Hospitalization, Other)
  Sender: FDA-Public Use
  Company Number: US-ALEXION-A201301460

PATIENT
  Sex: Female

DRUGS (1)
  1. SOLIRIS [Suspect]
     Indication: HAEMOLYTIC URAEMIC SYNDROME
     Dosage: 900 MG, QW
     Route: 042
     Dates: start: 20130612, end: 20130704

REACTIONS (7)
  - Fungal infection [Unknown]
  - Hypertension [Unknown]
  - Liver disorder [Recovered/Resolved]
  - Drug ineffective [Unknown]
  - Reticulocytosis [Unknown]
  - Blood bilirubin increased [Unknown]
  - Haptoglobin abnormal [Unknown]
